FAERS Safety Report 4647589-5 (Version None)
Quarter: 2005Q2

REPORT INFORMATION
  Report Type: 
  Country: None (occurrence: None)
  Receive Date: 20050426
  Receipt Date: 20050420
  Transmission Date: 20051028
  Serious: Yes (Hospitalization, Other)
  Sender: FDA-Public Use
  Company Number: FRWYE225923NOV04

PATIENT
  Age: 69 Year
  Sex: Female

DRUGS (8)
  1. EFFEXOR [Suspect]
     Dosage: ORAL
     Route: 048
  2. LOVENOX [Suspect]
     Dosage: ORAL
     Route: 048
  3. OMEPRAZOLE [Suspect]
     Dosage: ORAL
     Route: 048
  4. PRIMPERAN INJ [Suspect]
     Dosage: ORAL
     Route: 048
  5. SKENAN (MORPHINE SULFATE, , 0) [Suspect]
     Dosage: ORAL
     Route: 048
  6. TRACLEER [Suspect]
     Dosage: SEE IMAGE
     Route: 048
     Dates: start: 20040128, end: 20040301
  7. TRACLEER [Suspect]
     Dosage: SEE IMAGE
     Route: 048
     Dates: start: 20040302
  8. MOVICOL (MACROGOL/POTASSIUM CHLORIDE/SODIUM BICARBONATE/SODIUM CHLORID [Concomitant]

REACTIONS (2)
  - CONDITION AGGRAVATED [None]
  - PULMONARY HYPERTENSION [None]
